FAERS Safety Report 5333102-6 (Version None)
Quarter: 2007Q2

REPORT INFORMATION
  Report Type: 
  Country: None (occurrence: None)
  Receive Date: 20070524
  Receipt Date: 20070515
  Transmission Date: 20071010
  Serious: Yes (Hospitalization, Other)
  Sender: FDA-Public Use
  Company Number: GB-JNJFOC-20070503893

PATIENT
  Sex: Female
  Weight: 56 kg

DRUGS (15)
  1. REMICADE [Suspect]
     Indication: RHEUMATOID ARTHRITIS
     Route: 042
  2. METHOTREXATE [Concomitant]
  3. LEFLUNOMIDE [Concomitant]
  4. ADCAL [Concomitant]
  5. ALENDRONATE SODIUM [Concomitant]
  6. ATENOLOL [Concomitant]
  7. CAPTOPRIL [Concomitant]
  8. CARBAMAZEPINE [Concomitant]
  9. CEPHALEXIN [Concomitant]
  10. FOLIC ACID [Concomitant]
  11. NABUMETONE [Concomitant]
  12. NIFEDIPINE [Concomitant]
  13. OMEPRAZOLE [Concomitant]
  14. PROCHLORPERAZINE [Concomitant]
  15. TRAMADOL HCL [Concomitant]

REACTIONS (5)
  - GASTRITIS [None]
  - MYOCARDIAL ISCHAEMIA [None]
  - NEPHROLITHIASIS [None]
  - SEPSIS [None]
  - URINARY TRACT INFECTION [None]
